FAERS Safety Report 9233465 (Version 1)
Quarter: 2013Q2

REPORT INFORMATION
  Report Type: Spontaneous
  Country: US (occurrence: None)
  Receive Date: 20130416
  Receipt Date: 20130416
  Transmission Date: 20140414
  Serious: Yes (Hospitalization)
  Sender: FDA-Public Use
  Company Number: None

PATIENT
  Age: 56 Year
  Sex: Female
  Weight: 48.1 kg

DRUGS (2)
  1. BEVACIZUMAB [Suspect]
     Indication: GLIOBLASTOMA
     Dosage: 10MG/KG  DAYS 1+15  IV
     Route: 042
     Dates: start: 20121226, end: 20130403
  2. CARBOPLATIN [Suspect]
     Indication: GLIOBLASTOMA
     Dosage: AUC 6  DAY 1  IV
     Route: 042
     Dates: start: 20130109, end: 20130403

REACTIONS (4)
  - Tremor [None]
  - Asthenia [None]
  - Lethargy [None]
  - Anaemia [None]
